FAERS Safety Report 9552101 (Version 1)
Quarter: 2013Q3

REPORT INFORMATION
  Report Type: Spontaneous
  Country: KW (occurrence: None)
  Receive Date: 20130731
  Receipt Date: 20130731
  Transmission Date: 20140515
  Serious: Yes (Other)
  Sender: FDA-Public Use
  Company Number: ALK-2013-001573

PATIENT
  Age: 57 Year
  Sex: Female

DRUGS (2)
  1. VERAPAMIL HCL EXTENDED RELEASE TABLETS [Suspect]
     Indication: BLOOD PRESSURE INADEQUATELY CONTROLLED
     Dosage: 240 MG, QD
  2. PERINDOPRIL (PERINDOPRIL) [Concomitant]

REACTIONS (5)
  - Dizziness postural [None]
  - Blood creatinine increased [None]
  - Hyperkalaemia [None]
  - Fatigue [None]
  - Nodal arrhythmia [None]
